FAERS Safety Report 6624074-2 (Version None)
Quarter: 2010Q1

REPORT INFORMATION
  Report Type: 
  Country: None (occurrence: None)
  Receive Date: 20100310
  Receipt Date: 20100226
  Transmission Date: 20100710
  Serious: Yes (Hospitalization)
  Sender: FDA-Public Use
  Company Number: US-ROCHE-686340

PATIENT
  Age: 74 Year
  Sex: Male

DRUGS (6)
  1. BEVACIZUMAB [Suspect]
     Dosage: DAY 1 AND DAY 15 EVERY 28 DAYS
     Route: 042
     Dates: start: 20100201
  2. ERLOTINIB [Suspect]
     Dosage: FREQUENCY: DAILY EVERY 28 DAYS
     Route: 048
     Dates: start: 20100201, end: 20100208
  3. LOVENOX [Concomitant]
  4. GLIPIZIDE [Concomitant]
  5. ATENOLOL [Concomitant]
  6. MAXZIDE [Concomitant]

REACTIONS (8)
  - COUGH [None]
  - DEHYDRATION [None]
  - DIARRHOEA [None]
  - HYPONATRAEMIA [None]
  - PHARYNGITIS [None]
  - PLEURAL EFFUSION [None]
  - PYREXIA [None]
  - RASH [None]
